FAERS Safety Report 23363172 (Version 1)
Quarter: 2024Q1

REPORT INFORMATION
  Report Type: Spontaneous
  Country: TW (occurrence: TW)
  Receive Date: 20240103
  Receipt Date: 20240103
  Transmission Date: 20240410
  Serious: Yes (Death, Hospitalization)
  Sender: FDA-Public Use
  Company Number: TW-PFIZER INC-PV202300206750

PATIENT
  Age: 64 Year
  Sex: Female

DRUGS (1)
  1. XELJANZ XR [Suspect]
     Active Substance: TOFACITINIB CITRATE
     Indication: Rheumatoid arthritis
     Dosage: 11 MG, 1X/DAY
     Route: 048
     Dates: start: 20230704, end: 20231210

REACTIONS (4)
  - Cerebral haemorrhage [Fatal]
  - Subarachnoid haemorrhage [Fatal]
  - Fall [Fatal]
  - Diarrhoea [Fatal]

NARRATIVE: CASE EVENT DATE: 20231210
